FAERS Safety Report 6850294-8 (Version None)
Quarter: 2010Q3

REPORT INFORMATION
  Report Type: 
  Country: None (occurrence: None)
  Receive Date: 20100716
  Receipt Date: 20071011
  Transmission Date: 20110219
  Serious: No
  Sender: FDA-Public Use
  Company Number: US-PFIZER INC-2007086707

PATIENT
  Sex: Female
  Weight: 29.5 kg

DRUGS (8)
  1. CHANTIX [Suspect]
     Indication: SMOKING CESSATION THERAPY
     Dates: start: 20071001
  2. LORCET-HD [Concomitant]
  3. ALLEGRA [Concomitant]
  4. TRAZODONE HYDROCHLORIDE [Concomitant]
  5. VALIUM [Concomitant]
  6. ZOLOFT [Concomitant]
  7. MOBIC [Concomitant]
  8. PEPCID [Concomitant]

REACTIONS (4)
  - BACK PAIN [None]
  - NIGHTMARE [None]
  - PSYCHOMOTOR HYPERACTIVITY [None]
  - WEIGHT INCREASED [None]
